FAERS Safety Report 19666447 (Version 1)
Quarter: 2021Q3

REPORT INFORMATION
  Report Type: Spontaneous
  Country: US (occurrence: US)
  Receive Date: 20210806
  Receipt Date: 20210806
  Transmission Date: 20211014
  Serious: No
  Sender: FDA-Public Use
  Company Number: US-009507513-2107USA004343

PATIENT
  Age: 6 Decade
  Sex: Male

DRUGS (6)
  1. KEYTRUDA [Suspect]
     Active Substance: PEMBROLIZUMAB
     Indication: THYROID CANCER METASTATIC
     Dosage: UNK
  2. KEYTRUDA [Suspect]
     Active Substance: PEMBROLIZUMAB
     Indication: PAPILLARY THYROID CANCER
  3. DABRAFENIB [Suspect]
     Active Substance: DABRAFENIB
     Indication: THYROID CANCER METASTATIC
     Dosage: UNK
  4. DABRAFENIB [Suspect]
     Active Substance: DABRAFENIB
     Indication: PAPILLARY THYROID CANCER
  5. TRAMETINIB [Suspect]
     Active Substance: TRAMETINIB
     Indication: THYROID CANCER METASTATIC
     Dosage: UNK
  6. TRAMETINIB [Suspect]
     Active Substance: TRAMETINIB
     Indication: PAPILLARY THYROID CANCER

REACTIONS (1)
  - Immunisation reaction [Recovered/Resolved]
